FAERS Safety Report 22393729 (Version 1)
Quarter: 2023Q2

REPORT INFORMATION
  Report Type: Spontaneous
  Country: HU (occurrence: HU)
  Receive Date: 20230601
  Receipt Date: 20230601
  Transmission Date: 20230722
  Serious: Yes (Death, Hospitalization, Other)
  Sender: FDA-Public Use
  Company Number: HU-BAYER-2019-027465

PATIENT
  Age: 73 Year
  Sex: Female

DRUGS (3)
  1. CIPROFLOXACIN [Suspect]
     Active Substance: CIPROFLOXACIN
     Indication: Peritonitis
     Dosage: 500 MG, BID
     Route: 048
     Dates: start: 20170704
  2. VANCOMYCIN [Suspect]
     Active Substance: VANCOMYCIN
     Indication: Peritonitis
     Dosage: 1.5 G, EVERY FIVE DAYS
     Route: 033
     Dates: start: 20170704, end: 20170727
  3. VANCOMYCIN [Suspect]
     Active Substance: VANCOMYCIN
     Indication: Peritonitis
     Dosage: 1500 MG IN EVERY 5TH DAYS
     Route: 033
     Dates: start: 20170704, end: 20170727

REACTIONS (11)
  - Toxic epidermal necrolysis [Fatal]
  - Stevens-Johnson syndrome [Fatal]
  - Mucosal infection [Unknown]
  - Rash vesicular [Not Recovered/Not Resolved]
  - Pyrexia [Unknown]
  - Mucosal inflammation [Unknown]
  - Somnolence [Unknown]
  - Loss of consciousness [Unknown]
  - Confusional state [Unknown]
  - Hyperaemia [Not Recovered/Not Resolved]
  - Papule [Not Recovered/Not Resolved]

NARRATIVE: CASE EVENT DATE: 20170701
